FAERS Safety Report 4644489-1 (Version None)
Quarter: 2005Q2

REPORT INFORMATION
  Report Type: 
  Country: None (occurrence: None)
  Receive Date: 20050425
  Receipt Date: 20050425
  Transmission Date: 20051028
  Serious: Yes (Hospitalization)
  Sender: FDA-Public Use
  Company Number: None

PATIENT
  Age: 74 Year
  Sex: Female
  Weight: 88.4514 kg

DRUGS (2)
  1. FLAGYL [Suspect]
     Indication: HELICOBACTER INFECTION
     Dosage: 3/DAY FOR 10 DA
     Dates: start: 20040928, end: 20041004
  2. BIAXIN [Suspect]
     Indication: HELICOBACTER INFECTION
     Dosage: 2/DAY FOR 10 DA
     Dates: start: 20040928, end: 20041004

REACTIONS (4)
  - CONFUSIONAL STATE [None]
  - DEPRESSED LEVEL OF CONSCIOUSNESS [None]
  - FEELING ABNORMAL [None]
  - INSOMNIA [None]
